FAERS Safety Report 9666959 (Version 1)
Quarter: 2013Q4

REPORT INFORMATION
  Report Type: Spontaneous
  Country: US (occurrence: US)
  Receive Date: 20131104
  Receipt Date: 20131104
  Transmission Date: 20140711
  Serious: No
  Sender: FDA-Public Use
  Company Number: US-BIOGENIDEC-2013BI088579

PATIENT
  Age: 65 Year
  Sex: Female

DRUGS (10)
  1. TECFIDERA [Suspect]
     Indication: MULTIPLE SCLEROSIS
     Route: 048
     Dates: start: 20130528
  2. BROVANA [Concomitant]
  3. BUDESONIDE [Concomitant]
  4. FLUTICASONE [Concomitant]
  5. PROPIONATE [Concomitant]
  6. JUICE PLUS FIBRE [Concomitant]
  7. LANSOPRAZOLE [Concomitant]
  8. MICARDIS [Concomitant]
  9. PATADAY [Concomitant]
  10. SYNTHROID [Concomitant]

REACTIONS (2)
  - Flushing [Unknown]
  - Rash [Unknown]
